FAERS Safety Report 7208382-2 (Version None)
Quarter: 2011Q1

REPORT INFORMATION
  Report Type: 
  Country: None (occurrence: None)
  Receive Date: 20110104
  Receipt Date: 20101229
  Transmission Date: 20110831
  Serious: Yes (Death)
  Sender: FDA-Public Use
  Company Number: PHHY2010BE89736

PATIENT

DRUGS (1)
  1. ALISKIREN [Suspect]

REACTIONS (2)
  - PANCREATIC CARCINOMA [None]
  - DEATH [None]
